FAERS Safety Report 20893053 (Version 1)
Quarter: 2022Q2

REPORT INFORMATION
  Report Type: Spontaneous
  Country: IT (occurrence: IT)
  Receive Date: 20220531
  Receipt Date: 20220531
  Transmission Date: 20220721
  Serious: Yes (Other)
  Sender: FDA-Public Use
  Company Number: IT-MINISAL02-868204

PATIENT
  Age: 32 Year
  Sex: Female

DRUGS (2)
  1. CEFIXIME [Suspect]
     Active Substance: CEFIXIME
     Indication: Oropharyngeal pain
     Dosage: UNK
     Route: 048
     Dates: start: 20220504, end: 20220506
  2. BETAMETHASONE SODIUM PHOSPHATE [Concomitant]
     Active Substance: BETAMETHASONE SODIUM PHOSPHATE
     Indication: Oropharyngeal pain
     Dosage: 1 MILLIGRAM
     Route: 048
     Dates: start: 20220504, end: 20220506

REACTIONS (3)
  - Angioedema [Recovering/Resolving]
  - Vision blurred [Recovering/Resolving]
  - Lip oedema [Recovering/Resolving]

NARRATIVE: CASE EVENT DATE: 20220506
